FAERS Safety Report 24752246 (Version 2)
Quarter: 2024Q4

REPORT INFORMATION
  Report Type: Report from Study
  Country: US (occurrence: US)
  Receive Date: 20241219
  Receipt Date: 20241227
  Transmission Date: 20250114
  Serious: No
  Sender: ACADIA PHARMACEUTICALS
  Company Number: US-ACADIA PHARMACEUTICALS INC.-ACA-2024-PIM-008176

PATIENT
  Sex: Female

DRUGS (18)
  1. NUPLAZID [Suspect]
     Active Substance: PIMAVANSERIN TARTRATE
     Indication: Parkinson^s disease
     Dosage: 34 MILLIGRAM, QD
     Route: 048
  2. ELIQUIS [Concomitant]
     Active Substance: APIXABAN
  3. FLUDROCORTISONE [Concomitant]
     Active Substance: FLUDROCORTISONE
  4. MIDODRINE [Concomitant]
     Active Substance: MIDODRINE
  5. LUBIPROSTONE [Concomitant]
     Active Substance: LUBIPROSTONE
  6. LINZESS [Concomitant]
     Active Substance: LINACLOTIDE
  7. BACLOFEN [Concomitant]
     Active Substance: BACLOFEN
  8. VITAMIN D3 [Concomitant]
     Active Substance: CHOLECALCIFEROL
  9. PANTOPRAZOLE [Concomitant]
     Active Substance: PANTOPRAZOLE
  10. CALCIUM [Concomitant]
     Active Substance: CALCIUM
  11. DROXIDOPA [Concomitant]
     Active Substance: DROXIDOPA
  12. RIVASTIGMINE [Concomitant]
     Active Substance: RIVASTIGMINE
  13. ONDANSETRON [Concomitant]
     Active Substance: ONDANSETRON
  14. RYTARY [Concomitant]
     Active Substance: CARBIDOPA\LEVODOPA
  15. ROPINIROLE [Concomitant]
     Active Substance: ROPINIROLE
  16. PREGABALIN [Concomitant]
     Active Substance: PREGABALIN
  17. VITAMINS [Concomitant]
     Active Substance: VITAMINS
  18. CYANOCOBALAMIN [Concomitant]
     Active Substance: CYANOCOBALAMIN

REACTIONS (3)
  - Urinary tract infection [Unknown]
  - Blood pressure abnormal [Unknown]
  - Drug effect less than expected [Unknown]
